FAERS Safety Report 20227969 (Version 1)
Quarter: 2021Q4

REPORT INFORMATION
  Report Type: Report from Study
  Country: GT (occurrence: GT)
  Receive Date: 20211224
  Receipt Date: 20211224
  Transmission Date: 20220303
  Serious: Yes (Life-Threatening)
  Sender: FDA-Public Use
  Company Number: GT-NOVARTISPH-NVSC2021GT295350

PATIENT
  Age: 56 Year
  Sex: Male

DRUGS (3)
  1. EXFORGE [Suspect]
     Active Substance: AMLODIPINE BESYLATE\VALSARTAN
     Indication: Product used for unknown indication
     Dosage: UNK (160/5 MG STARTED APPROXIMATELY 4 MONTHS AGO)
     Route: 065
  2. EXFORGE [Suspect]
     Active Substance: AMLODIPINE BESYLATE\VALSARTAN
     Dosage: 0.5 DOSAGE FORM OF 10/320 MG (STARTED APPROXIMATELY 2 MONTHS AGO AND STOPPED APPROXIMATELY 2 MONTHS
     Route: 065
  3. EXFORGE [Suspect]
     Active Substance: AMLODIPINE BESYLATE\VALSARTAN
     Dosage: UNK (160/5 MG)
     Route: 065

REACTIONS (3)
  - Near death experience [Unknown]
  - Dizziness [Unknown]
  - Wrong technique in product usage process [Unknown]
